FAERS Safety Report 8193922-X (Version None)
Quarter: 2012Q1

REPORT INFORMATION
  Report Type: 
  Country: None (occurrence: None)
  Receive Date: 20120308
  Receipt Date: 20120223
  Transmission Date: 20120608
  Serious: Yes (Other)
  Sender: FDA-Public Use
  Company Number: DE-ELI_LILLY_AND_COMPANY-DE201201008237

PATIENT
  Age: 53 Year
  Sex: Male

DRUGS (5)
  1. CIALIS [Suspect]
     Dosage: UNK, UNKNOWN
  2. REYATAZ [Concomitant]
     Dosage: UNK
  3. TRUVADA [Concomitant]
     Dosage: UNK
  4. NORVIR [Concomitant]
     Dosage: UNK
  5. CIALIS [Suspect]
     Indication: ERECTILE DYSFUNCTION
     Dosage: 20 MG, UNK
     Route: 048
     Dates: start: 20120101

REACTIONS (5)
  - HEPATIC ENZYME INCREASED [None]
  - NAUSEA [None]
  - ABDOMINAL PAIN UPPER [None]
  - UNEVALUABLE EVENT [None]
  - HAEMATEMESIS [None]
